FAERS Safety Report 11512121 (Version 2)
Quarter: 2015Q4

REPORT INFORMATION
  Report Type: Spontaneous
  Country: BE (occurrence: BE)
  Receive Date: 20150916
  Receipt Date: 20151006
  Transmission Date: 20160304
  Serious: Yes (Hospitalization)
  Sender: FDA-Public Use
  Company Number: BE-ASTRAZENECA-2015SE88907

PATIENT
  Age: 490 Month
  Sex: Male
  Weight: 70 kg

DRUGS (10)
  1. ASAFLOW [Concomitant]
     Active Substance: ASPIRIN
     Route: 048
     Dates: start: 20100810
  2. LANTUS [Concomitant]
     Active Substance: INSULIN GLARGINE
     Route: 058
     Dates: start: 1986
  3. PHOSLO [Concomitant]
     Active Substance: CALCIUM ACETATE
     Dosage: 667 MG, 3X2 PER DAY
     Route: 048
     Dates: start: 20111020
  4. RENAGEL [Concomitant]
     Active Substance: SEVELAMER HYDROCHLORIDE
     Dosage: 800 MG, 3X2 PER DAY
     Route: 048
     Dates: start: 20110414
  5. SEROQUEL [Suspect]
     Active Substance: QUETIAPINE FUMARATE
     Indication: PSYCHOTIC DISORDER
     Route: 048
     Dates: start: 20140401, end: 20150810
  6. LOGIMAT [Concomitant]
  7. SIMVASTATIN. [Concomitant]
     Active Substance: SIMVASTATIN
     Route: 048
     Dates: start: 20100505
  8. LISINOPRIL. [Concomitant]
     Active Substance: LISINOPRIL
  9. OMEPRAZOLE. [Concomitant]
     Active Substance: OMEPRAZOLE
     Route: 048
     Dates: start: 20150730
  10. NOVORAPID [Concomitant]
     Active Substance: INSULIN ASPART
     Dosage: 8 IU-12 IU- 12 IU, THREE TIMES A DAY
     Route: 058
     Dates: start: 1986

REACTIONS (1)
  - Cardiac failure [Recovering/Resolving]

NARRATIVE: CASE EVENT DATE: 201411
